FAERS Safety Report 4724419-4 (Version None)
Quarter: 2005Q3

REPORT INFORMATION
  Report Type: 
  Country: None (occurrence: None)
  Receive Date: 20050726
  Receipt Date: 20050204
  Transmission Date: 20060218
  Serious: Yes (Other)
  Sender: FDA-Public Use
  Company Number: GB-ABBOTT-05P-167-0290430-00

PATIENT
  Weight: 66.6 kg

DRUGS (6)
  1. HUMIRA [Suspect]
     Indication: RHEUMATOID ARTHRITIS
     Route: 058
     Dates: start: 20040825, end: 20041229
  2. ENALAPRIL [Suspect]
     Indication: DRUG USE FOR UNKNOWN INDICATION
     Dosage: 20/125
     Route: 048
  3. METHOTREXATE [Concomitant]
     Indication: DRUG USE FOR UNKNOWN INDICATION
     Route: 048
  4. PREDNISOLONE [Concomitant]
     Indication: DRUG USE FOR UNKNOWN INDICATION
     Route: 048
  5. FOLIC ACID [Concomitant]
     Indication: DRUG USE FOR UNKNOWN INDICATION
     Route: 048
  6. VOLTEROL [Concomitant]
     Indication: DRUG USE FOR UNKNOWN INDICATION
     Route: 054

REACTIONS (4)
  - ANGIONEUROTIC OEDEMA [None]
  - ERYTHEMA [None]
  - OEDEMA PERIPHERAL [None]
  - PRURITUS [None]
